FAERS Safety Report 6759850 (Version 4)
Quarter: 2015Q2

REPORT INFORMATION
  Report Type: Spontaneous
  Country: JP (occurrence: JP)
  Receive Date: 20080916
  Receipt Date: 20150624
  Transmission Date: 20150821
  Serious: Yes (Life-Threatening, Hospitalization)
  Sender: FDA-Public Use
  Company Number: JP-JNJFOC-20080806341

PATIENT
  Age: 35 Year
  Sex: Female
  Weight: 52 kg

DRUGS (22)
  1. REMICADE [Suspect]
     Active Substance: INFLIXIMAB
     Indication: FISTULA
     Route: 042
     Dates: start: 20071114
  2. REMICADE [Suspect]
     Active Substance: INFLIXIMAB
     Indication: FISTULA
     Route: 042
     Dates: start: 20080514
  3. REMICADE [Suspect]
     Active Substance: INFLIXIMAB
     Indication: CROHN^S DISEASE
     Route: 042
     Dates: start: 20080514
  4. REMICADE [Suspect]
     Active Substance: INFLIXIMAB
     Indication: CROHN^S DISEASE
     Route: 042
     Dates: start: 20071017
  5. REMICADE [Suspect]
     Active Substance: INFLIXIMAB
     Indication: CROHN^S DISEASE
     Dosage: 7 DOSES
     Route: 042
     Dates: start: 20071003
  6. REMICADE [Suspect]
     Active Substance: INFLIXIMAB
     Indication: FISTULA
     Route: 042
     Dates: start: 20080709
  7. LAC-B [Concomitant]
     Active Substance: BIFIDOBACTERIUM SPP.
     Route: 048
     Dates: start: 1992
  8. SOLU-MEDROL [Concomitant]
     Active Substance: METHYLPREDNISOLONE SODIUM SUCCINATE
     Route: 042
     Dates: start: 20080709, end: 20080709
  9. BUFFERIN [Concomitant]
     Active Substance: ASPIRIN
     Route: 048
  10. LOPEMIN [Concomitant]
     Active Substance: LOPERAMIDE HYDROCHLORIDE
     Route: 048
  11. REMICADE [Suspect]
     Active Substance: INFLIXIMAB
     Indication: CROHN^S DISEASE
     Route: 042
     Dates: start: 20071114
  12. REMICADE [Suspect]
     Active Substance: INFLIXIMAB
     Indication: CROHN^S DISEASE
     Route: 042
     Dates: start: 20080116
  13. REMICADE [Suspect]
     Active Substance: INFLIXIMAB
     Indication: CROHN^S DISEASE
     Route: 042
     Dates: start: 20080312
  14. ELENTAL [Concomitant]
     Active Substance: MINERALS\VITAMINS
     Route: 048
     Dates: start: 1992
  15. ALLELOCK [Concomitant]
     Active Substance: OLOPATADINE HYDROCHLORIDE
     Route: 048
     Dates: start: 20040922
  16. REMICADE [Suspect]
     Active Substance: INFLIXIMAB
     Indication: FISTULA
     Route: 042
     Dates: start: 20080116
  17. REMICADE [Suspect]
     Active Substance: INFLIXIMAB
     Indication: CROHN^S DISEASE
     Route: 042
     Dates: start: 20080709
  18. REMICADE [Suspect]
     Active Substance: INFLIXIMAB
     Indication: FISTULA
     Dosage: 7 DOSES
     Route: 042
     Dates: start: 20071003
  19. REMICADE [Suspect]
     Active Substance: INFLIXIMAB
     Indication: FISTULA
     Route: 042
     Dates: start: 20071017
  20. REMICADE [Suspect]
     Active Substance: INFLIXIMAB
     Indication: FISTULA
     Route: 042
     Dates: start: 20080312
  21. SELBEX [Concomitant]
     Active Substance: TEPRENONE
     Route: 048
     Dates: start: 1992
  22. PARIET [Concomitant]
     Active Substance: RABEPRAZOLE SODIUM
     Route: 048
     Dates: start: 200309

REACTIONS (3)
  - Crohn^s disease [Unknown]
  - Melaena [Recovered/Resolved]
  - Acute promyelocytic leukaemia [Unknown]

NARRATIVE: CASE EVENT DATE: 20080730
